FAERS Safety Report 7350342-5 (Version None)
Quarter: 2011Q1

REPORT INFORMATION
  Report Type: 
  Country: None (occurrence: None)
  Receive Date: 20110314
  Receipt Date: 20110304
  Transmission Date: 20110831
  Serious: No
  Sender: FDA-Public Use
  Company Number: GB-ASTRAZENECA-2011SE07773

PATIENT
  Age: 36 Year
  Sex: Female

DRUGS (19)
  1. SEROQUEL [Suspect]
     Indication: BORDERLINE PERSONALITY DISORDER
     Route: 048
     Dates: start: 20101206
  2. SEROQUEL [Suspect]
     Dosage: 600 MG + 25 MG AS REQUIRED
     Route: 048
     Dates: start: 20110119
  3. THIAMINE [Concomitant]
     Indication: MEDICAL DIET
     Route: 048
     Dates: start: 20101223
  4. SEROQUEL [Suspect]
     Route: 048
     Dates: start: 20101216, end: 20101229
  5. DOMPERIDONE [Concomitant]
     Indication: NAUSEA
     Route: 048
     Dates: start: 20101216
  6. MIRTAZAPINE [Concomitant]
     Indication: DEPRESSED MOOD
     Route: 048
     Dates: start: 20110112
  7. FLUPENTHIXOL DECANOATE [Concomitant]
     Indication: BORDERLINE PERSONALITY DISORDER
     Route: 030
     Dates: start: 20101115, end: 20110117
  8. PEPTAC [Concomitant]
     Indication: DYSPEPSIA
     Route: 048
  9. VITAMIN B CO STRONG [Concomitant]
     Indication: MEDICAL DIET
     Route: 048
     Dates: start: 20101223
  10. DIAZEPAM [Concomitant]
     Indication: AGITATION
     Route: 048
     Dates: start: 20110118
  11. MOVIPREP [Concomitant]
     Indication: CONSTIPATION
     Route: 048
     Dates: start: 20110119
  12. FORTISIPS [Concomitant]
     Indication: MEDICAL DIET
     Route: 048
     Dates: start: 20110104
  13. SEROQUEL [Suspect]
     Route: 048
     Dates: start: 20101229
  14. NITRAZEPAM [Concomitant]
     Indication: INSOMNIA
     Route: 048
  15. SERETIDE ACCUHALER [Concomitant]
     Indication: ASTHMA
     Route: 055
  16. SEROQUEL [Suspect]
     Route: 048
  17. DOMPERIDONE [Concomitant]
     Indication: VOMITING
     Route: 048
     Dates: start: 20101216
  18. LANSOPRAZOLE [Concomitant]
     Indication: HIATUS HERNIA
     Route: 048
  19. CYCLIZINE [Concomitant]
     Indication: NAUSEA
     Route: 048
     Dates: start: 20110111

REACTIONS (1)
  - NEUTROPENIA [None]
